FAERS Safety Report 14597280 (Version 1)
Quarter: 2018Q1

REPORT INFORMATION
  Report Type: Spontaneous
  Country: GB (occurrence: GB)
  Receive Date: 20180305
  Receipt Date: 20180305
  Transmission Date: 20180509
  Serious: Yes (Other)
  Sender: FDA-Public Use
  Company Number: GB-SUN PHARMACEUTICAL INDUSTRIES LTD-2018RR-164987

PATIENT
  Age: 17 Year
  Sex: Male
  Weight: 55 kg

DRUGS (2)
  1. GERMOLOIDS [Concomitant]
     Indication: HAEMORRHOIDS
     Dosage: ()
     Route: 061
  2. ISOTRETINOIN. [Suspect]
     Active Substance: ISOTRETINOIN
     Indication: ACNE
     Dosage: DOSE REDUCED TO 30 MG.
     Route: 048
     Dates: start: 20180101

REACTIONS (4)
  - Urethritis noninfective [Unknown]
  - Anal inflammation [Unknown]
  - Urethral haemorrhage [Unknown]
  - Anal haemorrhage [Not Recovered/Not Resolved]

NARRATIVE: CASE EVENT DATE: 20180101
